FAERS Safety Report 8307234-4 (Version None)
Quarter: 2012Q2

REPORT INFORMATION
  Report Type: 
  Country: None (occurrence: None)
  Receive Date: 20120424
  Receipt Date: 20120419
  Transmission Date: 20120825
  Serious: Yes (Hospitalization)
  Sender: FDA-Public Use
  Company Number: US-B.I. PHARMACEUTICALS,INC./RIDGEFIELD-2012-BP-07503BP

PATIENT
  Sex: Male

DRUGS (6)
  1. MAXALT [Concomitant]
     Indication: MIGRAINE
     Route: 048
  2. TRAZODONE HCL [Concomitant]
     Indication: INSOMNIA
     Route: 048
  3. ADVAIR DISKUS 100/50 [Concomitant]
     Indication: CHRONIC OBSTRUCTIVE PULMONARY DISEASE
     Route: 055
  4. VITAMIN B COMPLEX CAP [Concomitant]
     Indication: ROUTINE HEALTH MAINTENANCE
     Route: 048
  5. SPIRIVA [Suspect]
     Indication: CHRONIC OBSTRUCTIVE PULMONARY DISEASE
     Dosage: 18 MCG
     Route: 055
     Dates: start: 20080101
  6. ASPIRIN [Concomitant]
     Indication: ROUTINE HEALTH MAINTENANCE
     Dosage: 81 MG
     Route: 048

REACTIONS (5)
  - PERIPHERAL VASCULAR DISORDER [None]
  - PNEUMONIA [None]
  - PNEUMONIA FUNGAL [None]
  - AMPUTATION STUMP PAIN [None]
  - CONSTIPATION [None]
